FAERS Safety Report 12283661 (Version 1)
Quarter: 2016Q2

REPORT INFORMATION
  Report Type: Spontaneous
  Country: US (occurrence: US)
  Receive Date: 20160419
  Receipt Date: 20160419
  Transmission Date: 20160815
  Serious: No
  Sender: FDA-Public Use
  Company Number: ADR-2015-01340

PATIENT
  Age: 39 Year
  Sex: Male

DRUGS (2)
  1. BACLOFEN. [Suspect]
     Active Substance: BACLOFEN
     Dosage: 150 MCG/DAY
     Route: 037
     Dates: start: 20150702
  2. TIZANIDINE. [Suspect]
     Active Substance: TIZANIDINE

REACTIONS (2)
  - Migraine [Unknown]
  - Post lumbar puncture syndrome [Unknown]
